FAERS Safety Report 25878635 (Version 1)
Quarter: 2025Q4

REPORT INFORMATION
  Report Type: Spontaneous
  Country: EU (occurrence: EU)
  Receive Date: 20251003
  Receipt Date: 20251003
  Transmission Date: 20260117
  Serious: Yes (Hospitalization, Other)
  Sender: SANDOZ
  Company Number: EU-002147023-PHHY2010NL90282

PATIENT
  Age: 28 Year
  Sex: Male

DRUGS (10)
  1. AZATHIOPRINE [Suspect]
     Active Substance: AZATHIOPRINE
     Indication: Neutrophilic dermatosis
     Dosage: 50MG TWICE PER DAY
     Route: 065
  2. CYCLOSPORINE [Suspect]
     Active Substance: CYCLOSPORINE
     Indication: Myelosuppression
     Dosage: 125 MG, BID
     Route: 065
  3. CYCLOSPORINE [Suspect]
     Active Substance: CYCLOSPORINE
     Dosage: 200 MG, QD
     Route: 065
  4. CYCLOSPORINE [Suspect]
     Active Substance: CYCLOSPORINE
     Indication: Neutrophilic dermatosis
     Dosage: 100MG TWICE PER DAY
     Route: 065
  5. PREDNISONE [Suspect]
     Active Substance: PREDNISONE
     Indication: Acute febrile neutrophilic dermatosis
     Dosage: 30 MG, QD
     Route: 065
  6. PREDNISONE [Suspect]
     Active Substance: PREDNISONE
     Indication: Neutrophilic dermatosis
     Dosage: 1MGK PER DAY
     Route: 065
  7. ALENDRONIC ACID [Concomitant]
     Active Substance: ALENDRONIC ACID
     Indication: Product used for unknown indication
     Dosage: UNK
     Route: 065
  8. CALCIUM CARBONATE [Concomitant]
     Active Substance: CALCIUM CARBONATE
     Indication: Product used for unknown indication
     Dosage: UNK
     Route: 065
  9. DAPSONE [Concomitant]
     Active Substance: DAPSONE
     Indication: Neutrophilic dermatosis
     Route: 065
  10. DAPSONE [Concomitant]
     Active Substance: DAPSONE
     Indication: Neutrophilic dermatosis
     Route: 065

REACTIONS (5)
  - Osteonecrosis [Unknown]
  - Myelosuppression [Recovering/Resolving]
  - Renal impairment [Unknown]
  - Osteopenia [Unknown]
  - Osteoporosis [Unknown]
